FAERS Safety Report 13448287 (Version 1)
Quarter: 2017Q2

REPORT INFORMATION
  Report Type: Spontaneous
  Country: US (occurrence: US)
  Receive Date: 20170417
  Receipt Date: 20170417
  Transmission Date: 20170830
  Serious: No
  Sender: FDA-Public Use
  Company Number: US-009507513-1704USA001023

PATIENT
  Age: 8 Year
  Sex: Female

DRUGS (2)
  1. DULERA [Suspect]
     Active Substance: FORMOTEROL FUMARATE DIHYDRATE\MOMETASONE FUROATE
     Indication: ASTHMA
  2. THERAPY UNSPECIFIED [Suspect]
     Active Substance: UNSPECIFIED INGREDIENT
     Indication: ASTHMA

REACTIONS (3)
  - Asthma [Unknown]
  - Drug ineffective [Unknown]
  - Product use issue [Unknown]
